FAERS Safety Report 10099344 (Version 3)
Quarter: 2015Q3

REPORT INFORMATION
  Report Type: Spontaneous
  Country: US (occurrence: US)
  Receive Date: 20140423
  Receipt Date: 20150814
  Transmission Date: 20151125
  Serious: No
  Sender: FDA-Public Use
  Company Number: US-GILEAD-2013-0069906

PATIENT
  Age: 68 Year
  Sex: Female

DRUGS (2)
  1. LETAIRIS [Suspect]
     Active Substance: AMBRISENTAN
     Indication: COR PULMONALE
     Dosage: 5 MG, QD
     Route: 048
     Dates: start: 20121228
  2. LETAIRIS [Suspect]
     Active Substance: AMBRISENTAN
     Indication: UPPER RESPIRATORY TRACT INFECTION

REACTIONS (3)
  - Respiratory tract congestion [Unknown]
  - Bronchitis [Unknown]
  - Malaise [Unknown]
